FAERS Safety Report 7099889-X (Version None)
Quarter: 2010Q4

REPORT INFORMATION
  Report Type: 
  Country: None (occurrence: None)
  Receive Date: 20101112
  Receipt Date: 20101105
  Transmission Date: 20110411
  Serious: Yes (Hospitalization, Other)
  Sender: FDA-Public Use
  Company Number: BR-SANOFI-AVENTIS-2010SA067722

PATIENT
  Sex: Female
  Weight: 94 kg

DRUGS (12)
  1. LANTUS [Suspect]
     Indication: TYPE 2 DIABETES MELLITUS
     Dosage: 40IU IN MORNING AND 35IU AT NIGHT
     Route: 058
  2. LANTUS [Suspect]
     Dosage: 35IU IN MORNING AND 25IU AT NIGHT
     Route: 058
  3. OPTIPEN [Suspect]
  4. REGULAR INSULIN [Concomitant]
     Indication: TYPE 2 DIABETES MELLITUS
     Route: 058
  5. GLUCOFORMIN [Concomitant]
     Indication: TYPE 2 DIABETES MELLITUS
     Route: 048
  6. MIOFLEX [Concomitant]
     Indication: ANTIINFLAMMATORY THERAPY
     Route: 048
  7. ATACAND [Concomitant]
     Indication: BLOOD PRESSURE
     Route: 048
  8. CRESTOR [Concomitant]
     Route: 048
     Dates: start: 20100101
  9. ATENOLOL [Concomitant]
     Route: 048
  10. PLAVIX [Concomitant]
     Route: 048
  11. LASIX [Concomitant]
     Route: 048
  12. ALL OTHER THERAPEUTIC PRODUCTS [Concomitant]
     Indication: GASTRIC DISORDER
     Route: 048

REACTIONS (18)
  - BACK PAIN [None]
  - BLOOD GLUCOSE FLUCTUATION [None]
  - COLD SWEAT [None]
  - DEPRESSION [None]
  - DIABETIC NEUROPATHY [None]
  - FALL [None]
  - GAIT DISTURBANCE [None]
  - HUNGER [None]
  - HYPOGLYCAEMIA [None]
  - INSOMNIA [None]
  - MALAISE [None]
  - MYOCARDIAL INFARCTION [None]
  - OEDEMA MOUTH [None]
  - PAIN [None]
  - PALLOR [None]
  - TREMOR [None]
  - UNEVALUABLE EVENT [None]
  - VISION BLURRED [None]
